FAERS Safety Report 7623611-9 (Version None)
Quarter: 2011Q3

REPORT INFORMATION
  Report Type: 
  Country: None (occurrence: None)
  Receive Date: 20110712
  Receipt Date: 20110629
  Transmission Date: 20111222
  Serious: Yes (Hospitalization, Other)
  Sender: FDA-Public Use
  Company Number: 2009AC000459

PATIENT
  Age: 90 Year
  Sex: Female
  Weight: 71.6683 kg

DRUGS (19)
  1. METOPROLOL TARTRATE [Concomitant]
  2. XALATAN [Concomitant]
  3. HYDROCHLOROTHIAZIDE [Concomitant]
  4. SUPER B COMPLEX [Concomitant]
  5. PROTONIX [Concomitant]
  6. COUMADIN [Concomitant]
  7. PERCOCET [Concomitant]
  8. DIGOXIN [Suspect]
     Dosage: 0.125 MG;QD;PO
     Route: 048
     Dates: start: 20050612, end: 20091001
  9. KLOR-CON [Concomitant]
  10. NAPROXEN (ALEVE) [Concomitant]
  11. TYLENOL-500 [Concomitant]
  12. TRAVATAN [Concomitant]
  13. LASIX [Concomitant]
  14. COUMADIN [Concomitant]
  15. LASIX [Concomitant]
  16. MULTI-VITAMIN [Concomitant]
  17. CALCIUM CARBONATE [Concomitant]
  18. POTASSIUM [Concomitant]
  19. VICODIN [Concomitant]

REACTIONS (34)
  - MULTIPLE INJURIES [None]
  - ECONOMIC PROBLEM [None]
  - DILATATION ATRIAL [None]
  - URINARY TRACT INFECTION [None]
  - SURGERY [None]
  - DYSPNOEA [None]
  - GLAUCOMA [None]
  - PERICARDIAL EFFUSION [None]
  - FATIGUE [None]
  - OPTIC NEUROPATHY [None]
  - GENERALISED OEDEMA [None]
  - JOINT SWELLING [None]
  - OEDEMA PERIPHERAL [None]
  - NAUSEA [None]
  - DILATATION VENTRICULAR [None]
  - AORTIC VALVE INCOMPETENCE [None]
  - LACERATION [None]
  - PULMONARY OEDEMA [None]
  - DIZZINESS [None]
  - FALL [None]
  - HYPOXIA [None]
  - JOINT EFFUSION [None]
  - MUSCULOSKELETAL DISCOMFORT [None]
  - TRICUSPID VALVE INCOMPETENCE [None]
  - RIGHT VENTRICULAR FAILURE [None]
  - ENCEPHALOMALACIA [None]
  - LIMB INJURY [None]
  - PAINFUL RESPIRATION [None]
  - RIB FRACTURE [None]
  - CHEST DISCOMFORT [None]
  - GOUT [None]
  - AORTIC VALVE SCLEROSIS [None]
  - JOINT INJURY [None]
  - HYPERTENSION [None]
